FAERS Safety Report 6070957-4 (Version None)
Quarter: 2009Q1

REPORT INFORMATION
  Report Type: 
  Country: None (occurrence: None)
  Receive Date: 20090209
  Receipt Date: 20090202
  Transmission Date: 20090719
  Serious: Yes (Congenital Anomaly)
  Sender: FDA-Public Use
  Company Number: A0743107A

PATIENT
  Sex: Male

DRUGS (4)
  1. PAXIL [Suspect]
     Indication: BIPOLAR DISORDER
     Dates: start: 20030801, end: 20080101
  2. LITHIUM CARBONATE [Concomitant]
  3. ZOFRAN [Concomitant]
     Indication: NAUSEA
  4. VITAMIN TAB [Concomitant]

REACTIONS (13)
  - AUTISM [None]
  - CONVULSION [None]
  - DEAFNESS [None]
  - DIARRHOEA [None]
  - DRUG EXPOSURE DURING PREGNANCY [None]
  - EXPRESSIVE LANGUAGE DISORDER [None]
  - HEART DISEASE CONGENITAL [None]
  - MIXED RECEPTIVE-EXPRESSIVE LANGUAGE DISORDER [None]
  - NEURAL TUBE DEFECT [None]
  - PYREXIA [None]
  - RESPIRATORY TRACT INFECTION [None]
  - SINUSITIS [None]
  - SPEECH DISORDER DEVELOPMENTAL [None]
